FAERS Safety Report 6965326-6 (Version None)
Quarter: 2010Q3

REPORT INFORMATION
  Report Type: 
  Country: None (occurrence: None)
  Receive Date: 20100901
  Receipt Date: 20100823
  Transmission Date: 20110219
  Serious: Yes (Hospitalization)
  Sender: FDA-Public Use
  Company Number: D1004010

PATIENT
  Age: 76 Year
  Sex: Female

DRUGS (12)
  1. AMANTADINE HCL [Suspect]
     Indication: PARKINSON'S DISEASE
     Dosage: 1 IN 1 D, ORAL; 2 IN 1 D ORAL
     Route: 048
     Dates: start: 20100601, end: 20100101
  2. AMANTADINE HCL [Suspect]
     Indication: PARKINSON'S DISEASE
     Dosage: 1 IN 1 D, ORAL; 2 IN 1 D ORAL
     Route: 048
     Dates: start: 20100101, end: 20100701
  3. METFORMIN HCL [Concomitant]
  4. CARBIDOPA AND LEVODOPA [Concomitant]
  5. MIRAPEX (PRAMIPEXOL DIHYDROCHLORIDE) [Concomitant]
  6. ASPIRIN [Concomitant]
  7. FISH OIL (FISH OIL) [Concomitant]
  8. VITAMIN D 9ERGOCALCIFEROL) [Concomitant]
  9. COENZYME Q10 [Concomitant]
  10. VITAMIN B (THIAMINE HYDROCHLORIDE) [Concomitant]
  11. SELENIUM (SELENIUM) [Concomitant]
  12. NIACIN [Concomitant]

REACTIONS (5)
  - BLOOD GLUCOSE INCREASED [None]
  - DYSPNOEA [None]
  - LOSS OF CONSCIOUSNESS [None]
  - SKIN DISCOLOURATION [None]
  - TREATMENT NONCOMPLIANCE [None]
